FAERS Safety Report 23880829 (Version 2)
Quarter: 2024Q2

REPORT INFORMATION
  Report Type: Spontaneous
  Country: US (occurrence: US)
  Receive Date: 20240521
  Receipt Date: 20240607
  Transmission Date: 20240716
  Serious: Yes (Life-Threatening, Hospitalization)
  Sender: FDA-Public Use
  Company Number: US-TEVA-VS-3200414

PATIENT
  Age: 3 Year
  Sex: Female

DRUGS (8)
  1. ALBUTEROL [Suspect]
     Active Substance: ALBUTEROL
     Indication: Asthma
     Dosage: RECEIVED SEVERAL NEBULISATIONS ON THE SAME EVENING
     Route: 055
  2. ALBUTEROL [Suspect]
     Active Substance: ALBUTEROL
     Dosage: RECEIVED THROUGH ENDOTRACHEAL TUBE
     Route: 050
  3. ALBUTEROL [Suspect]
     Active Substance: ALBUTEROL
  4. ALBUTEROL [Suspect]
     Active Substance: ALBUTEROL
  5. EPINEPHRINE [Suspect]
     Active Substance: EPINEPHRINE
     Indication: Asthma
     Dosage: RECEIVED 1:1000 AT .01ML/KG
     Route: 058
  6. EPINEPHRINE [Suspect]
     Active Substance: EPINEPHRINE
     Dosage: DOSE INCREASED TO 0.3ML/KG
     Route: 058
  7. METHYLPREDNISOLONE [Suspect]
     Active Substance: METHYLPREDNISOLONE
     Indication: Asthma
     Route: 042
  8. SALINE [Concomitant]
     Active Substance: SODIUM CHLORIDE
     Indication: Product used for unknown indication
     Dosage: RECEIVED VIA BOLUS AT 20ML/KG NORMAL-SALINE
     Route: 065

REACTIONS (1)
  - Drug ineffective [Unknown]
